FAERS Safety Report 9464755 (Version 1)
Quarter: 2013Q3

REPORT INFORMATION
  Report Type: Report from Study
  Country: US (occurrence: US)
  Receive Date: 20130819
  Receipt Date: 20130819
  Transmission Date: 20140515
  Serious: Yes (Other)
  Sender: FDA-Public Use
  Company Number: US-GLAXOSMITHKLINE-A1038074A

PATIENT
  Age: 50 Year
  Sex: Male
  Weight: 90 kg

DRUGS (5)
  1. LAPATINIB [Suspect]
     Indication: OESOPHAGEAL CARCINOMA
     Dosage: 1000MG PER DAY
     Route: 048
     Dates: start: 20130408
  2. PRILOSEC [Concomitant]
     Dosage: 40MG PER DAY
  3. METOPROLOL [Concomitant]
     Dosage: 50MG PER DAY
  4. COMPAZINE [Concomitant]
     Dosage: 10MG AS REQUIRED
  5. DEXAMETHASONE [Concomitant]

REACTIONS (1)
  - Retinal vascular disorder [Unknown]
